FAERS Safety Report 25526262 (Version 1)
Quarter: 2025Q3

REPORT INFORMATION
  Report Type: Report from Study
  Country: US (occurrence: US)
  Receive Date: 20250707
  Receipt Date: 20250707
  Transmission Date: 20251021
  Serious: Yes (Hospitalization)
  Sender: PFIZER
  Company Number: US-PFIZER INC-202500134077

PATIENT
  Age: 64 Year
  Sex: Female
  Weight: 80.086 kg

DRUGS (1)
  1. TUKYSA [Suspect]
     Active Substance: TUCATINIB
     Indication: Breast cancer female
     Dosage: 300 MG, 2X/DAY
     Route: 048
     Dates: start: 20250318

REACTIONS (4)
  - Pulmonary oedema [Unknown]
  - Pleurisy [Unknown]
  - Product dose omission in error [Unknown]
  - Cognitive disorder [Not Recovered/Not Resolved]
